FAERS Safety Report 8393801-9 (Version None)
Quarter: 2012Q2

REPORT INFORMATION
  Report Type: 
  Country: None (occurrence: None)
  Receive Date: 20120530
  Receipt Date: 20070710
  Transmission Date: 20120825
  Serious: No
  Sender: FDA-Public Use
  Company Number: 2007BI014756

PATIENT
  Age: 20 Year
  Sex: Female

DRUGS (1)
  1. TYSABRI [Suspect]
     Indication: MULTIPLE SCLEROSIS
     Route: 042
     Dates: start: 20070515, end: 20111108

REACTIONS (2)
  - INFECTION [None]
  - BRONCHITIS [None]
